FAERS Safety Report 4332845-0 (Version None)
Quarter: 2004Q1

REPORT INFORMATION
  Report Type: 
  Country: None (occurrence: None)
  Receive Date: 20040330
  Receipt Date: 20040319
  Transmission Date: 20041129
  Serious: No
  Sender: FDA-Public Use
  Company Number: 04P-087-0251193-00

PATIENT
  Age: 9 Year
  Sex: Male

DRUGS (4)
  1. SEVOFLURANE [Suspect]
     Indication: ANAESTHESIA
     Dosage: 0-3.5%, INHALATION
     Route: 055
     Dates: start: 20030705, end: 20030705
  2. THIAMYLAL SODIUM [Concomitant]
  3. DICLOFENAC SODIUM [Concomitant]
  4. NITROUS OXIDE [Concomitant]

REACTIONS (10)
  - ALANINE AMINOTRANSFERASE INCREASED [None]
  - ANAESTHETIC COMPLICATION [None]
  - ASPARTATE AMINOTRANSFERASE INCREASED [None]
  - BLOOD CREATINE PHOSPHOKINASE INCREASED [None]
  - BLOOD LACTATE DEHYDROGENASE INCREASED [None]
  - HYPERHIDROSIS [None]
  - HYPERTHERMIA MALIGNANT [None]
  - METABOLIC ACIDOSIS [None]
  - RESTLESSNESS [None]
  - TACHYCARDIA [None]
